FAERS Safety Report 7064845-4 (Version None)
Quarter: 2010Q4

REPORT INFORMATION
  Report Type: 
  Country: None (occurrence: None)
  Receive Date: 20101027
  Receipt Date: 19870819
  Transmission Date: 20110411
  Serious: Yes (Death, Life-Threatening)
  Sender: FDA-Public Use
  Company Number: JP-ROCHE-870103790001

PATIENT
  Age: 61 Year
  Sex: Female

DRUGS (8)
  1. RIVOTRIL [Suspect]
     Route: 048
     Dates: start: 19850219, end: 19850306
  2. DIAZEPAM [Suspect]
     Route: 048
     Dates: start: 19850306, end: 19850306
  3. PHENYTOIN [Suspect]
     Route: 048
     Dates: start: 19850114, end: 19850306
  4. NITRAZEPAM [Suspect]
     Route: 048
     Dates: start: 19850307, end: 19850319
  5. ESTAZOLAM [Concomitant]
     Indication: INSOMNIA
     Route: 048
     Dates: start: 19840829, end: 19850306
  6. CINAL [Concomitant]
     Route: 048
     Dates: start: 19850114, end: 19850306
  7. VALPROATE SODIUM [Concomitant]
     Route: 048
     Dates: start: 19850306, end: 19850306
  8. CHLORAL HYDRATE [Concomitant]
     Route: 065
     Dates: start: 19850307, end: 19850319

REACTIONS (2)
  - CARDIAC FAILURE [None]
  - PANCYTOPENIA [None]
